FAERS Safety Report 6010464-8 (Version None)
Quarter: 2008Q4

REPORT INFORMATION
  Report Type: 
  Country: None (occurrence: None)
  Receive Date: 20081218
  Receipt Date: 20071212
  Transmission Date: 20090506
  Serious: No
  Sender: FDA-Public Use
  Company Number: US-AMGEN-KDL256619

PATIENT
  Sex: Female

DRUGS (2)
  1. ENBREL [Suspect]
     Indication: RHEUMATOID ARTHRITIS
     Route: 058
     Dates: start: 20050901
  2. METHOTREXATE [Concomitant]
     Dates: start: 20050101

REACTIONS (5)
  - ARTHRALGIA [None]
  - CONTUSION [None]
  - HEADACHE [None]
  - JOINT SWELLING [None]
  - ORAL HERPES [None]
